FAERS Safety Report 8547720-5 (Version None)
Quarter: 2012Q3

REPORT INFORMATION
  Report Type: 
  Country: None (occurrence: None)
  Receive Date: 20120727
  Receipt Date: 20120427
  Transmission Date: 20120928
  Serious: No
  Sender: FDA-Public Use
  Company Number: US-ASTRAZENECA-2012SE28150

PATIENT
  Age: 56 Year
  Sex: Male
  Weight: 99.8 kg

DRUGS (3)
  1. DEPAKOTE [Suspect]
     Route: 065
  2. SEROQUEL XR [Suspect]
     Indication: BIPOLAR DISORDER
     Route: 048
  3. SEROQUEL XR [Suspect]
     Route: 048

REACTIONS (11)
  - INCREASED APPETITE [None]
  - DEPRESSED MOOD [None]
  - SOMNOLENCE [None]
  - CONDITION AGGRAVATED [None]
  - HYPOKINESIA [None]
  - DIZZINESS [None]
  - THERAPEUTIC RESPONSE UNEXPECTED [None]
  - ADVERSE EVENT [None]
  - HEADACHE [None]
  - IRRITABILITY [None]
  - OEDEMA PERIPHERAL [None]
